FAERS Safety Report 4836011-1 (Version None)
Quarter: 2005Q4

REPORT INFORMATION
  Report Type: 
  Country: None (occurrence: None)
  Receive Date: 20051123
  Receipt Date: 20051026
  Transmission Date: 20060501
  Serious: Yes (Death)
  Sender: FDA-Public Use
  Company Number: DE-SANOFI-SYNTHELABO-A04200500911

PATIENT
  Sex: Male
  Weight: 73 kg

DRUGS (3)
  1. ELOXATIN [Suspect]
     Indication: COLON CANCER METASTATIC
     Route: 041
     Dates: start: 20051001, end: 20051001
  2. FLUOROURACIL [Concomitant]
     Indication: COLON CANCER METASTATIC
     Route: 041
     Dates: start: 20051001, end: 20051001
  3. FLUOROURACIL [Concomitant]
     Route: 041
     Dates: start: 20051001, end: 20051001

REACTIONS (1)
  - PELVIC PAIN [None]
